FAERS Safety Report 7626613-1 (Version None)
Quarter: 2011Q3

REPORT INFORMATION
  Report Type: 
  Country: None (occurrence: None)
  Receive Date: 20110721
  Receipt Date: 20110422
  Transmission Date: 20111222
  Serious: No
  Sender: FDA-Public Use
  Company Number: US-NOVEN-11US002324

PATIENT
  Age: 72 Year
  Sex: Female

DRUGS (5)
  1. FENTANYL [Suspect]
     Indication: PAIN
     Dosage: 75 UG/HR
     Route: 062
     Dates: start: 20030101
  2. ANTIHYPERTENSIVES [Concomitant]
     Indication: HYPERTENSION
     Route: 048
  3. VITAMIN B12                        /00056201/ [Concomitant]
     Indication: HYPOVITAMINOSIS
     Dosage: UNK
     Route: 030
  4. ANTIDEPRESSANTS [Concomitant]
  5. EFFEXOR [Concomitant]
     Indication: DEPRESSION
     Route: 048

REACTIONS (2)
  - DEPRESSION [None]
  - FATIGUE [None]
